FAERS Safety Report 15191614 (Version 1)
Quarter: 2018Q3

REPORT INFORMATION
  Report Type: Spontaneous
  Country: US (occurrence: US)
  Receive Date: 20180724
  Receipt Date: 20180724
  Transmission Date: 20181010
  Serious: No
  Sender: FDA-Public Use
  Company Number: US-ANIPHARMA-2018-US-008501

PATIENT
  Age: 71 Year
  Sex: Male
  Weight: 88.45 kg

DRUGS (3)
  1. VALIUM [Concomitant]
     Active Substance: DIAZEPAM
  2. NILUTAMIDE TABLETS [Suspect]
     Active Substance: NILUTAMIDE
     Indication: NEOPLASM MALIGNANT
     Dosage: 1 TABLET DAILY
     Route: 048
     Dates: start: 20180508
  3. ZOLOFT [Concomitant]
     Active Substance: SERTRALINE HYDROCHLORIDE

REACTIONS (4)
  - Asthenia [Unknown]
  - Dizziness [Unknown]
  - Blood pressure increased [Unknown]
  - Nausea [Unknown]

NARRATIVE: CASE EVENT DATE: 20180516
